FAERS Safety Report 24145046 (Version 1)
Quarter: 2024Q3

REPORT INFORMATION
  Report Type: Spontaneous
  Country: US (occurrence: US)
  Receive Date: 20240729
  Receipt Date: 20240729
  Transmission Date: 20241017
  Serious: No
  Sender: GLENMARK
  Company Number: US-GLENMARK PHARMACEUTICALS-2024GMK090759

PATIENT

DRUGS (2)
  1. NYSTATIN\TRIAMCINOLONE ACETONIDE [Suspect]
     Active Substance: NYSTATIN\TRIAMCINOLONE ACETONIDE
     Indication: Eczema
     Dosage: UNK, PRN, AS NEEDED MORNING AND NIGHT
     Route: 061
     Dates: start: 20200901, end: 20240506
  2. NYSTATIN\TRIAMCINOLONE ACETONIDE [Suspect]
     Active Substance: NYSTATIN\TRIAMCINOLONE ACETONIDE
     Indication: Lip exfoliation

REACTIONS (4)
  - Skin discolouration [Unknown]
  - Product use in unapproved indication [Unknown]
  - Expired product administered [Unknown]
  - Product taste abnormal [Unknown]

NARRATIVE: CASE EVENT DATE: 20200901
